FAERS Safety Report 25643753 (Version 1)
Quarter: 2025Q3

REPORT INFORMATION
  Report Type: Report from Study
  Country: EU (occurrence: EU)
  Receive Date: 20250805
  Receipt Date: 20250805
  Transmission Date: 20251021
  Serious: Yes (Death)
  Sender: MYLAN
  Company Number: EU-MYLANLABS-2025M1065392

PATIENT
  Age: 2 Year

DRUGS (40)
  1. GEMCITABINE [Suspect]
     Active Substance: GEMCITABINE
     Indication: Congenital teratoma
  2. GEMCITABINE [Suspect]
     Active Substance: GEMCITABINE
     Indication: Metastases to liver
     Route: 065
  3. GEMCITABINE [Suspect]
     Active Substance: GEMCITABINE
     Route: 065
  4. GEMCITABINE [Suspect]
     Active Substance: GEMCITABINE
  5. CISPLATIN [Suspect]
     Active Substance: CISPLATIN
     Indication: Congenital teratoma
  6. CISPLATIN [Suspect]
     Active Substance: CISPLATIN
     Indication: Metastases to liver
     Route: 065
  7. CISPLATIN [Suspect]
     Active Substance: CISPLATIN
     Route: 065
  8. CISPLATIN [Suspect]
     Active Substance: CISPLATIN
  9. CARBOPLATIN [Suspect]
     Active Substance: CARBOPLATIN
     Indication: Congenital teratoma
  10. CARBOPLATIN [Suspect]
     Active Substance: CARBOPLATIN
     Indication: Metastases to liver
     Route: 065
  11. CARBOPLATIN [Suspect]
     Active Substance: CARBOPLATIN
     Route: 065
  12. CARBOPLATIN [Suspect]
     Active Substance: CARBOPLATIN
  13. PACLITAXEL [Suspect]
     Active Substance: PACLITAXEL
     Indication: Congenital teratoma
  14. PACLITAXEL [Suspect]
     Active Substance: PACLITAXEL
     Indication: Metastases to liver
     Route: 065
  15. PACLITAXEL [Suspect]
     Active Substance: PACLITAXEL
     Route: 065
  16. PACLITAXEL [Suspect]
     Active Substance: PACLITAXEL
  17. VINBLASTINE [Suspect]
     Active Substance: VINBLASTINE
     Indication: Congenital teratoma
  18. VINBLASTINE [Suspect]
     Active Substance: VINBLASTINE
     Indication: Metastases to liver
     Route: 065
  19. VINBLASTINE [Suspect]
     Active Substance: VINBLASTINE
     Route: 065
  20. VINBLASTINE [Suspect]
     Active Substance: VINBLASTINE
  21. IFOSFAMIDE [Suspect]
     Active Substance: IFOSFAMIDE
     Indication: Congenital teratoma
  22. IFOSFAMIDE [Suspect]
     Active Substance: IFOSFAMIDE
     Indication: Metastases to liver
     Route: 065
  23. IFOSFAMIDE [Suspect]
     Active Substance: IFOSFAMIDE
     Route: 065
  24. IFOSFAMIDE [Suspect]
     Active Substance: IFOSFAMIDE
  25. ETOPOSIDE PHOSPHATE [Suspect]
     Active Substance: ETOPOSIDE PHOSPHATE
     Indication: Congenital teratoma
  26. ETOPOSIDE PHOSPHATE [Suspect]
     Active Substance: ETOPOSIDE PHOSPHATE
     Indication: Metastases to liver
     Route: 065
  27. ETOPOSIDE PHOSPHATE [Suspect]
     Active Substance: ETOPOSIDE PHOSPHATE
     Route: 065
  28. ETOPOSIDE PHOSPHATE [Suspect]
     Active Substance: ETOPOSIDE PHOSPHATE
  29. BLEOMYCIN [Suspect]
     Active Substance: BLEOMYCIN SULFATE
     Indication: Congenital teratoma
  30. BLEOMYCIN [Suspect]
     Active Substance: BLEOMYCIN SULFATE
     Indication: Metastases to liver
     Route: 065
  31. BLEOMYCIN [Suspect]
     Active Substance: BLEOMYCIN SULFATE
     Route: 065
  32. BLEOMYCIN [Suspect]
     Active Substance: BLEOMYCIN SULFATE
  33. ETOPOSIDE [Suspect]
     Active Substance: ETOPOSIDE
     Indication: Congenital teratoma
  34. ETOPOSIDE [Suspect]
     Active Substance: ETOPOSIDE
     Indication: Metastases to liver
     Route: 065
  35. ETOPOSIDE [Suspect]
     Active Substance: ETOPOSIDE
     Route: 065
  36. ETOPOSIDE [Suspect]
     Active Substance: ETOPOSIDE
  37. CYCLOPHOSPHAMIDE [Suspect]
     Active Substance: CYCLOPHOSPHAMIDE
     Indication: Congenital teratoma
  38. CYCLOPHOSPHAMIDE [Suspect]
     Active Substance: CYCLOPHOSPHAMIDE
     Indication: Metastases to liver
     Route: 065
  39. CYCLOPHOSPHAMIDE [Suspect]
     Active Substance: CYCLOPHOSPHAMIDE
     Route: 065
  40. CYCLOPHOSPHAMIDE [Suspect]
     Active Substance: CYCLOPHOSPHAMIDE

REACTIONS (3)
  - Drug ineffective for unapproved indication [Fatal]
  - Disease progression [Fatal]
  - Off label use [Unknown]
